FAERS Safety Report 5234785-1 (Version None)
Quarter: 2007Q1

REPORT INFORMATION
  Report Type: 
  Country: None (occurrence: None)
  Receive Date: 20070209
  Receipt Date: 20070202
  Transmission Date: 20070707
  Serious: Yes (Hospitalization)
  Sender: FDA-Public Use
  Company Number: US-BOEHRINGER INGELHEIM PHARMACEUTICALS, INC.-2007-BP-01784PF

PATIENT

DRUGS (3)
  1. SPIRIVA [Suspect]
     Indication: DYSPNOEA
  2. SPIRIVA [Suspect]
     Indication: FATIGUE
  3. MYCENIA [Concomitant]

REACTIONS (2)
  - MYASTHENIA GRAVIS [None]
  - RESPIRATORY FAILURE [None]
